FAERS Safety Report 21412008 (Version 1)
Quarter: 2022Q4

REPORT INFORMATION
  Report Type: Spontaneous
  Country: CN (occurrence: None)
  Receive Date: 20221005
  Receipt Date: 20221005
  Transmission Date: 20230113
  Serious: Yes (Other)
  Sender: FDA-Public Use
  Company Number: 2022A334691

PATIENT
  Age: 89 Year
  Sex: Male

DRUGS (15)
  1. DAPAGLIFLOZIN [Interacting]
     Active Substance: DAPAGLIFLOZIN
     Dosage: 5 MG QD, ON JUNE 17
     Route: 048
  2. MEMANTINE HYDROCHLORIDE [Interacting]
     Active Substance: MEMANTINE HYDROCHLORIDE
     Dosage: 5 MG QD, ON JUNE 17
     Route: 048
  3. SACUBITRIL\VALSARTAN [Concomitant]
     Active Substance: SACUBITRIL\VALSARTAN
     Dosage: 50 MG BID
     Route: 048
  4. RIVAROXABAN [Concomitant]
     Active Substance: RIVAROXABAN
     Dosage: 10 MG QD
     Route: 048
  5. ATORVASTATIN CALCIUM [Concomitant]
     Active Substance: ATORVASTATIN CALCIUM
     Indication: Dyslipidaemia
     Dosage: 20 MG, QN
     Route: 048
  6. ALLOPURINOL [Concomitant]
     Active Substance: ALLOPURINOL
     Indication: Hyperuricaemia
     Dosage: 50 MG QD
     Route: 048
  7. FINASTERIDE [Concomitant]
     Active Substance: FINASTERIDE
     Dosage: 0.2 MG QD
     Route: 048
  8. TAMSULOSIN HYDROCHLORIDE [Concomitant]
     Active Substance: TAMSULOSIN HYDROCHLORIDE
     Dosage: TABLETS (50 MG QD PO)?
     Route: 048
  9. ASPIRIN [Concomitant]
     Active Substance: ASPIRIN
     Indication: Coronary artery disease
     Dosage: 100 MG QD
     Route: 048
  10. METOPROLOL SUCCINATE [Concomitant]
     Active Substance: METOPROLOL SUCCINATE
     Indication: Coronary artery disease
     Dosage: 23.75 MG, QD
     Route: 048
  11. TELMISARTAN [Concomitant]
     Active Substance: TELMISARTAN
     Dosage: 80 MG QD
     Route: 048
  12. ACARBOSE [Concomitant]
     Active Substance: ACARBOSE
     Dosage: 100 MG QD
     Route: 048
  13. RIVASTIGMINE [Concomitant]
     Active Substance: RIVASTIGMINE
     Dosage: 3 MG QD
     Route: 048
  14. LEVODOPA [Concomitant]
     Active Substance: LEVODOPA
     Dosage: 3 MG QD
     Route: 048
  15. BENSERAZIDE HYDROCHLORIDE [Concomitant]
     Active Substance: BENSERAZIDE HYDROCHLORIDE
     Dosage: 125 MG BID
     Route: 048

REACTIONS (2)
  - Rhabdomyolysis [Recovering/Resolving]
  - Drug interaction [Recovering/Resolving]
